FAERS Safety Report 17118601 (Version 1)
Quarter: 2019Q4

REPORT INFORMATION
  Report Type: Report from Study
  Country: None (occurrence: JP)
  Receive Date: 20191206
  Receipt Date: 20191206
  Transmission Date: 20200122
  Serious: Yes (Death, Other)
  Sender: FDA-Public Use
  Company Number: JP-ABBVIE-18K-087-3108404-00

PATIENT
  Age: 82 Year
  Sex: Male
  Weight: 52.8 kg

DRUGS (1)
  1. IMBRUVICA [Suspect]
     Active Substance: IBRUTINIB
     Indication: MANTLE CELL LYMPHOMA RECURRENT
     Route: 048
     Dates: start: 20170616

REACTIONS (9)
  - Mantle cell lymphoma recurrent [Fatal]
  - Tumour lysis syndrome [Fatal]
  - Treatment noncompliance [Unknown]
  - Lymphocyte count increased [Recovering/Resolving]
  - Headache [Unknown]
  - Death [Fatal]
  - Haemorrhage subcutaneous [Recovered/Resolved]
  - Lacunar infarction [Unknown]
  - Cerebral infarction [Recovered/Resolved]

NARRATIVE: CASE EVENT DATE: 2017
